FAERS Safety Report 5923888-1 (Version None)
Quarter: 2008Q4

REPORT INFORMATION
  Report Type: 
  Country: None (occurrence: None)
  Receive Date: 20081020
  Receipt Date: 20081014
  Transmission Date: 20090506
  Serious: Yes (Disabling)
  Sender: FDA-Public Use
  Company Number: US-MERCK-0808USA02436

PATIENT
  Age: 70 Year
  Sex: Female
  Weight: 75 kg

DRUGS (6)
  1. FOSAMAX PLUS D [Suspect]
     Indication: OSTEOPOROSIS
     Route: 048
     Dates: start: 20071207, end: 20080801
  2. DETROL [Concomitant]
     Route: 065
  3. PREVACID [Concomitant]
     Route: 065
  4. HYDROCHLOROTHIAZIDE [Concomitant]
     Route: 065
  5. ATENOLOL [Concomitant]
     Route: 065
  6. ACTONEL [Concomitant]
     Route: 065
     Dates: start: 20040326, end: 20071207

REACTIONS (5)
  - BREAST CANCER [None]
  - FOOT DEFORMITY [None]
  - PAIN [None]
  - RESORPTION BONE INCREASED [None]
  - TOOTH INFECTION [None]
